FAERS Safety Report 8721433 (Version 2)
Quarter: 2012Q4

REPORT INFORMATION
  Report Type: 
  Country: NL (occurrence: NL)
  Receive Date: 20120813
  Receipt Date: 20121107
  Transmission Date: 20130627
  Serious: Yes (Other)
  Sender: FDA-Public Use
  Company Number: NL-BAXTER-2012BAX013715

PATIENT
  Age: 8 Year
  Sex: Male

DRUGS (2)
  1. ADVATE 250 IE [Suspect]
     Indication: HEMOPHILIA
     Route: 042
     Dates: start: 20100101
  2. ADVATE 500 IE [Suspect]
     Indication: HEMOPHILIA
     Route: 042
     Dates: start: 20100101

REACTIONS (6)
  - Device related infection [Recovered/Resolved]
  - Neck pain [Recovered/Resolved]
  - Nausea [Recovered/Resolved]
  - Pyrexia [Not Recovered/Not Resolved]
  - Malaise [Recovered/Resolved]
  - Vomiting [Recovered/Resolved]
